FAERS Safety Report 6697771-0 (Version None)
Quarter: 2010Q2

REPORT INFORMATION
  Report Type: 
  Country: None (occurrence: None)
  Receive Date: 20100423
  Receipt Date: 20100409
  Transmission Date: 20101027
  Serious: Yes (Hospitalization)
  Sender: FDA-Public Use
  Company Number: 010075

PATIENT
  Age: 69 Year
  Sex: Male

DRUGS (2)
  1. KEPPRA [Suspect]
     Indication: EPILEPSY
     Dosage: 500 MG TALBETS
     Dates: start: 20090421, end: 20090430
  2. PHENYTOIN [Suspect]
     Indication: EPILEPSY
     Dosage: DOSE
     Dates: start: 20090327, end: 20090421

REACTIONS (2)
  - DRUG RASH WITH EOSINOPHILIA AND SYSTEMIC SYMPTOMS [None]
  - NEUTROPENIA [None]
